FAERS Safety Report 4955106-5 (Version None)
Quarter: 2006Q1

REPORT INFORMATION
  Report Type: 
  Country: None (occurrence: None)
  Receive Date: 20060322
  Receipt Date: 20060302
  Transmission Date: 20060701
  Serious: Yes (Hospitalization)
  Sender: FDA-Public Use
  Company Number: US200603000875

PATIENT
  Age: 82 Year
  Sex: Female

DRUGS (2)
  1. FORTEO [Suspect]
     Indication: OSTEOPOROSIS
     Dates: start: 20050701
  2. FORTEO PEN (FORTEO PEN) [Concomitant]

REACTIONS (9)
  - CONDITION AGGRAVATED [None]
  - DIFFICULTY IN WALKING [None]
  - EYE PAIN [None]
  - FACIAL BONES FRACTURE [None]
  - FALL [None]
  - MOBILITY DECREASED [None]
  - PHARMACEUTICAL PRODUCT COMPLAINT [None]
  - VASCULAR INJURY [None]
  - VISUAL ACUITY REDUCED [None]
